FAERS Safety Report 9852732 (Version 1)
Quarter: 2014Q1

REPORT INFORMATION
  Report Type: Spontaneous
  Country: CA (occurrence: None)
  Receive Date: 20140127
  Receipt Date: 20140127
  Transmission Date: 20141002
  Serious: Yes (Hospitalization)
  Sender: FDA-Public Use
  Company Number: 2012US-62234

PATIENT
  Age: 73 Year
  Sex: Male

DRUGS (6)
  1. PANTOPRAZOLE (PANTOPRAZOLE) UNKNOWN [Suspect]
     Indication: GASTROOESOPHAGEAL REFLUX DISEASE
  2. FUROSEMIDE (FUROSEMIDE) UNKNOWN [Concomitant]
  3. RAMIPRIL (RAMIPRIL) (UNKNOWN) [Concomitant]
  4. SULFASALAZINE (SULFASALAZINE) UNKNOWN [Concomitant]
  5. TAMSULOSIN (TAMSULOSIN) UNKNOWN [Concomitant]
  6. LEFLUNOMIDE (LEFLUNOMIDE) UNKNOWN [Concomitant]

REACTIONS (4)
  - Tubulointerstitial nephritis [None]
  - Aphagia [None]
  - Fatigue [None]
  - Nausea [None]
